FAERS Safety Report 10767479 (Version 1)
Quarter: 2015Q1

REPORT INFORMATION
  Report Type: Spontaneous
  Country: FR (occurrence: FR)
  Receive Date: 20150205
  Receipt Date: 20150205
  Transmission Date: 20150721
  Serious: Yes (Other)
  Sender: FDA-Public Use
  Company Number: ALCN2015FR000912

PATIENT
  Age: 60 Year
  Sex: Male

DRUGS (2)
  1. MONOPROST [Concomitant]
     Active Substance: LATANOPROST
     Dosage: UNK
  2. TOBRADEX [Suspect]
     Active Substance: DEXAMETHASONE\TOBRAMYCIN
     Indication: POSTOPERATIVE CARE
     Dosage: UNK
     Route: 047

REACTIONS (2)
  - Corneal endothelial cell loss [Unknown]
  - Intraocular pressure increased [Recovered/Resolved]
